FAERS Safety Report 19713710 (Version 2)
Quarter: 2021Q3

REPORT INFORMATION
  Report Type: Spontaneous
  Country: US (occurrence: US)
  Receive Date: 20210817
  Receipt Date: 20210820
  Transmission Date: 20211014
  Serious: Yes (Other)
  Sender: FDA-Public Use
  Company Number: US-CELLTRION INC.-2021US009054

PATIENT

DRUGS (5)
  1. DIAMOX SEQUELS [Concomitant]
     Active Substance: ACETAZOLAMIDE
     Indication: CSF VOLUME DECREASED
     Dosage: 250 MG, ONCE DAILY AT NIGHT (INCREASED TO 500MG/DECREASED TO 250G)
     Route: 048
  2. INFLECTRA [Suspect]
     Active Substance: INFLIXIMAB-DYYB
     Indication: COLITIS ULCERATIVE
     Dosage: 100 MG
     Route: 065
     Dates: start: 20191124
  3. VENOFER [Concomitant]
     Active Substance: IRON SUCROSE
     Indication: ANAEMIA
     Dosage: CALLER BELIEVES 500MG BY INJECTION EVERY 4 WEEKS
     Dates: start: 20191205
  4. ACETAMINOPHEN. [Concomitant]
     Active Substance: ACETAMINOPHEN
     Indication: PREMEDICATION
     Dosage: STARTED AT 1000MG AND HAS NOW BEEN REDUCED TO 675MG
  5. BENADRYL [Concomitant]
     Active Substance: DIPHENHYDRAMINE HYDROCHLORIDE
     Indication: PREMEDICATION
     Dosage: 25 MG

REACTIONS (13)
  - Ear canal injury [Unknown]
  - Drug hypersensitivity [Unknown]
  - Psoriasis [Not Recovered/Not Resolved]
  - Vertigo [Unknown]
  - Hordeolum [Unknown]
  - Oropharyngeal pain [Unknown]
  - Migraine [Unknown]
  - Eye disorder [Unknown]
  - Headache [Unknown]
  - Underdose [Unknown]
  - Off label use [Unknown]
  - Proctalgia [Not Recovered/Not Resolved]
  - Hypoaesthesia [Unknown]

NARRATIVE: CASE EVENT DATE: 20191124
